FAERS Safety Report 17744761 (Version 2)
Quarter: 2023Q2

REPORT INFORMATION
  Report Type: Spontaneous
  Country: US (occurrence: US)
  Receive Date: 20200505
  Receipt Date: 20230512
  Transmission Date: 20230722
  Serious: No
  Sender: FDA-Public Use
  Company Number: US-PFIZER INC-2020178111

PATIENT
  Age: 67 Year
  Sex: Male
  Weight: 111.1 kg

DRUGS (1)
  1. METHOTREXATE SODIUM [Suspect]
     Active Substance: METHOTREXATE SODIUM
     Dosage: UNK
     Dates: start: 2016

REACTIONS (2)
  - Therapeutic product effect incomplete [Unknown]
  - Arthritis [Unknown]
